FAERS Safety Report 22594665 (Version 4)
Quarter: 2023Q2

REPORT INFORMATION
  Report Type: Spontaneous
  Country: US (occurrence: US)
  Receive Date: 20230613
  Receipt Date: 20230626
  Transmission Date: 20230722
  Serious: Yes (Life-Threatening, Hospitalization, Disabling, Other)
  Sender: FDA-Public Use
  Company Number: US-009507513-2306USA004007

PATIENT
  Age: 65 Year
  Sex: Male

DRUGS (1)
  1. KEYTRUDA [Suspect]
     Active Substance: PEMBROLIZUMAB
     Indication: Renal cell carcinoma
     Dosage: UNK
     Route: 042
     Dates: start: 20221105, end: 20221105

REACTIONS (8)
  - Ill-defined disorder [Recovering/Resolving]
  - Myasthenia gravis [Recovering/Resolving]
  - Eating disorder [Recovering/Resolving]
  - Medical procedure [Recovering/Resolving]
  - Cardiac pacemaker insertion [Recovering/Resolving]
  - Tracheostomy [Unknown]
  - Bedridden [Recovering/Resolving]
  - Drug ineffective [Unknown]

NARRATIVE: CASE EVENT DATE: 20220101
